FAERS Safety Report 15929574 (Version 3)
Quarter: 2019Q2

REPORT INFORMATION
  Report Type: Spontaneous
  Country: US (occurrence: US)
  Receive Date: 20190206
  Receipt Date: 20190412
  Transmission Date: 20190711
  Serious: No
  Sender: FDA-Public Use
  Company Number: US-SA-2019SA032497

PATIENT
  Age: 61 Year
  Sex: Female

DRUGS (1)
  1. DUPIXENT [Suspect]
     Active Substance: DUPILUMAB
     Indication: DERMATITIS ATOPIC
     Dosage: UNK UNK, QOW
     Route: 058
     Dates: start: 20181205

REACTIONS (4)
  - Peripheral swelling [Unknown]
  - Pruritus [Unknown]
  - Wrong technique in product usage process [Unknown]
  - Dry skin [Unknown]

NARRATIVE: CASE EVENT DATE: 201812
